FAERS Safety Report 4672608-X (Version None)
Quarter: 2005Q2

REPORT INFORMATION
  Report Type: 
  Country: None (occurrence: None)
  Receive Date: 20050524
  Receipt Date: 20050520
  Transmission Date: 20051028
  Serious: Yes (Other)
  Sender: FDA-Public Use
  Company Number: 2005009412

PATIENT
  Age: 23 Year
  Sex: Female
  Weight: 90 kg

DRUGS (3)
  1. QUILONUM RETARD [Suspect]
     Dosage: 9000MG SINGLE DOSE
     Route: 048
     Dates: start: 20050520
  2. PARACETAMOL [Suspect]
     Dosage: 15000MG SINGLE DOSE
     Route: 048
     Dates: start: 20050520
  3. TAVOR [Suspect]
     Dosage: 20MG SINGLE DOSE
     Route: 048
     Dates: start: 20050520

REACTIONS (3)
  - FATIGUE [None]
  - INTENTIONAL MISUSE [None]
  - SUICIDE ATTEMPT [None]
